FAERS Safety Report 4870190-5 (Version None)
Quarter: 2005Q4

REPORT INFORMATION
  Report Type: 
  Country: None (occurrence: None)
  Receive Date: 20051227
  Receipt Date: 20051215
  Transmission Date: 20060501
  Serious: Yes (Hospitalization)
  Sender: FDA-Public Use
  Company Number: 6019284

PATIENT
  Age: 60 Year
  Sex: Female

DRUGS (3)
  1. LEVOTHYROXINE SODIUM [Suspect]
     Indication: THYROIDECTOMY
     Dosage: ORAL
     Route: 048
     Dates: end: 20051112
  2. MAALOX (TABLET) (MAGNESIUM HYDROXIDE, ALUMINIUM HYDROXIDE) [Suspect]
     Indication: ABDOMINAL PAIN UPPER
     Dosage: ORAL
     Route: 048
     Dates: start: 20050801, end: 20051112
  3. PHOSPHALUGEL (ORAL SUSPENSION) (ALUMINIUM PHOSPHATE GEL) [Suspect]
     Indication: ABDOMINAL PAIN UPPER
     Dosage: 20 DOSAGE FORMS (20 DOSAGE FORMS, 1 WK) ORAL
     Route: 048
     Dates: start: 20050801, end: 20051112

REACTIONS (6)
  - ANURIA [None]
  - DEHYDRATION [None]
  - HYPERPHOSPHATAEMIA [None]
  - HYPOCALCAEMIA [None]
  - INTESTINAL OBSTRUCTION [None]
  - RENAL FAILURE [None]
